FAERS Safety Report 13898775 (Version 5)
Quarter: 2017Q3

REPORT INFORMATION
  Report Type: Report from Study
  Country: CA (occurrence: CA)
  Receive Date: 20170824
  Receipt Date: 20170919
  Transmission Date: 20171127
  Serious: Yes (Other)
  Sender: FDA-Public Use
  Company Number: CA-GLAXOSMITHKLINE-CA2017GSK129458

PATIENT
  Age: 60 Year
  Sex: Female

DRUGS (4)
  1. BREO ELLIPTA [Suspect]
     Active Substance: FLUTICASONE FUROATE\VILANTEROL TRIFENATATE
     Indication: PRODUCT USED FOR UNKNOWN INDICATION
     Dosage: UNK
     Dates: start: 2016
  2. VENTOLIN [Suspect]
     Active Substance: ALBUTEROL SULFATE
     Indication: PRODUCT USED FOR UNKNOWN INDICATION
     Dosage: UNK
  3. FLUTICASONE PROPIONATE. [Suspect]
     Active Substance: FLUTICASONE PROPIONATE
     Indication: PRODUCT USED FOR UNKNOWN INDICATION
     Dosage: UNK
  4. INCRUSE ELLIPTA [Suspect]
     Active Substance: UMECLIDINIUM BROMIDE
     Indication: PRODUCT USED FOR UNKNOWN INDICATION
     Dosage: UNK
     Dates: start: 2016

REACTIONS (14)
  - Culture urine positive [Unknown]
  - Urinary tract infection [Unknown]
  - Diverticulitis [Unknown]
  - Stoma closure [Unknown]
  - Anaemia [Unknown]
  - Knee arthroplasty [Unknown]
  - Intestinal obstruction [Unknown]
  - Macular degeneration [Unknown]
  - Hysterectomy [Unknown]
  - Hiatus hernia [Unknown]
  - Arthritis [Unknown]
  - Chronic sinusitis [Unknown]
  - Fungal infection [Unknown]
  - Blood urine present [Unknown]

NARRATIVE: CASE EVENT DATE: 1994
